FAERS Safety Report 9001796 (Version 1)
Quarter: 2013Q1

REPORT INFORMATION
  Report Type: Report from Study
  Country: US (occurrence: US)
  Receive Date: 20130107
  Receipt Date: 20130107
  Transmission Date: 20140127
  Serious: Yes (Hospitalization, Other)
  Sender: FDA-Public Use
  Company Number: US-ABBOTT-12P-163-1028456-00

PATIENT
  Sex: Female
  Weight: 61.74 kg

DRUGS (14)
  1. HUMIRA [Suspect]
     Indication: RHEUMATOID ARTHRITIS
     Dates: end: 2010
  2. HUMIRA [Suspect]
     Dates: start: 2010, end: 2011
  3. HUMIRA PEN [Suspect]
     Indication: RHEUMATOID ARTHRITIS
     Dates: start: 2011, end: 201205
  4. ASPIRIN [Concomitant]
     Indication: CARDIAC DISORDER
  5. LIPITOR [Concomitant]
     Indication: BLOOD CHOLESTEROL INCREASED
  6. COREG [Concomitant]
     Indication: HYPERTENSION
  7. VITAMIN D NOS [Concomitant]
     Indication: PRODUCT USED FOR UNKNOWN INDICATION
  8. PLAVIX [Concomitant]
     Indication: PRODUCT USED FOR UNKNOWN INDICATION
  9. COLACE SODIUM [Concomitant]
     Indication: CONSTIPATION
  10. FOLIC ACID [Concomitant]
     Indication: GOUT
  11. LEVOTHYROXINE [Concomitant]
     Indication: HYPOTHYROIDISM
  12. LISINOPRIL [Concomitant]
     Indication: CARDIAC DISORDER
  13. KLOR-CON [Concomitant]
     Indication: MINERAL SUPPLEMENTATION
  14. ALLOPURINOL [Concomitant]
     Indication: GOUT

REACTIONS (21)
  - Bradycardia [Recovered/Resolved]
  - Coronary artery bypass [Recovered/Resolved]
  - Hip fracture [Recovered/Resolved]
  - Femur fracture [Recovered/Resolved]
  - Fall [Recovered/Resolved]
  - Pneumonia [Recovered/Resolved]
  - Therapeutic response unexpected [Not Recovered/Not Resolved]
  - Asthma [Not Recovered/Not Resolved]
  - Restless legs syndrome [Not Recovered/Not Resolved]
  - Bradycardia [Unknown]
  - Local swelling [Not Recovered/Not Resolved]
  - Asthma [Not Recovered/Not Resolved]
  - Cough [Not Recovered/Not Resolved]
  - Gait disturbance [Not Recovered/Not Resolved]
  - Mobility decreased [Not Recovered/Not Resolved]
  - Asthenia [Not Recovered/Not Resolved]
  - Mycobacterium avium complex infection [Not Recovered/Not Resolved]
  - Respiratory tract infection fungal [Not Recovered/Not Resolved]
  - Nausea [Not Recovered/Not Resolved]
  - Arrhythmia [Unknown]
  - Tuberculosis [Unknown]
